FAERS Safety Report 13196096 (Version 1)
Quarter: 2017Q1

REPORT INFORMATION
  Report Type: Spontaneous
  Country: DE (occurrence: DE)
  Receive Date: 20170208
  Receipt Date: 20170208
  Transmission Date: 20170428
  Serious: Yes (Congenital Anomaly)
  Sender: FDA-Public Use
  Company Number: DE-AUROBINDO-AUR-APL-2017-29077

PATIENT
  Age: 1 Day
  Sex: Male
  Weight: 3.22 kg

DRUGS (2)
  1. VENLAFAXINE [Suspect]
     Active Substance: VENLAFAXINE HYDROCHLORIDE
     Indication: POST-TRAUMATIC STRESS DISORDER
     Dosage: 150 MG, DAILY
     Route: 064
     Dates: start: 20151202, end: 20160614
  2. ATOSIL                             /00033002/ [Suspect]
     Active Substance: PROMETHAZINE HYDROCHLORIDE
     Indication: POST-TRAUMATIC STRESS DISORDER
     Dosage: 25 MG, DAILY
     Route: 064
     Dates: start: 20151202, end: 20160705

REACTIONS (5)
  - Ventricular septal defect [Unknown]
  - Atrial septal defect [Unknown]
  - Foetal exposure during pregnancy [Unknown]
  - Congenital diaphragmatic hernia [Recovered/Resolved with Sequelae]
  - Patent ductus arteriosus [Recovering/Resolving]

NARRATIVE: CASE EVENT DATE: 20160920
